FAERS Safety Report 5766094-6 (Version None)
Quarter: 2008Q2

REPORT INFORMATION
  Report Type: 
  Country: None (occurrence: None)
  Receive Date: 20080611
  Receipt Date: 20080530
  Transmission Date: 20081010
  Serious: Yes (Other)
  Sender: FDA-Public Use
  Company Number: GB-PFIZER INC-2008047089

PATIENT
  Age: 48 Year
  Sex: Male
  Weight: 80.7 kg

DRUGS (1)
  1. CHANTIX [Suspect]
     Indication: SMOKING CESSATION THERAPY
     Route: 048
     Dates: start: 20080401, end: 20080414

REACTIONS (4)
  - AGGRESSION [None]
  - AMNESIA [None]
  - ANGER [None]
  - CRYING [None]
